FAERS Safety Report 18323743 (Version 1)
Quarter: 2020Q3

REPORT INFORMATION
  Report Type: Spontaneous
  Country: US (occurrence: US)
  Receive Date: 20200929
  Receipt Date: 20200929
  Transmission Date: 20201103
  Serious: Yes (Hospitalization)
  Sender: FDA-Public Use
  Company Number: US-FRESENIUS KABI-FK202009899

PATIENT
  Age: 88 Year
  Sex: Female
  Weight: 41.3 kg

DRUGS (19)
  1. IRINOTECAN [Suspect]
     Active Substance: IRINOTECAN
     Indication: CERVIX CARCINOMA
     Dosage: NANOLIPOSOMAL (92 MG/M2; ONCE EVERY 2 WEEKS)
     Route: 042
     Dates: start: 20200810
  2. PROCHLORPERAZINE. [Concomitant]
     Active Substance: PROCHLORPERAZINE
     Indication: NAUSEA
     Dosage: 10 MG, TID PRN
     Route: 048
     Dates: start: 20200821
  3. ACETYLSALICYLIC ACID [Concomitant]
     Active Substance: ASPIRIN
     Indication: PRODUCT USED FOR UNKNOWN INDICATION
     Dosage: QD
     Route: 048
  4. COLECALCIFEROL [Concomitant]
     Active Substance: CHOLECALCIFEROL
     Indication: SUPPLEMENTATION THERAPY
     Dosage: 5000 IU, QD
     Route: 048
  5. ATROPINE SULFATE/DIPHENOXYLATE HYDROCHLORIDE [Concomitant]
     Active Substance: ATROPINE SULFATE\DIPHENOXYLATE HYDROCHLORIDE
     Indication: DIARRHOEA
     Dosage: 2.5?0.25 MG, Q6H PRN
     Route: 048
  6. METOPROLOL. [Concomitant]
     Active Substance: METOPROLOL
     Indication: HYPERTENSION
     Dosage: 50 MG, BID
     Route: 048
  7. ASCORBIC ACID/PYRIDOXINE HYDROCHLORIDE/BIOTIN/FOLIC ACID/CYANOCOBALAMIN/RIBOFLAVIN/NICOTINAMIDE/CALC [Concomitant]
     Indication: SUPPLEMENTATION THERAPY
     Dosage: 1, QD
     Route: 048
  8. FLUOROURACIL INJECTION, USP [Suspect]
     Active Substance: FLUOROURACIL
     Indication: CERVIX CARCINOMA
     Dosage: 2.4 GM/M2; CIVI OVER 46 H Q2W
     Route: 042
     Dates: start: 20200812
  9. FLUOROURACIL INJECTION, USP [Suspect]
     Active Substance: FLUOROURACIL
     Dosage: 2.4 GM/M2; CIVI OVER 46 H Q2W
     Route: 042
     Dates: start: 20200812
  10. CYANOCOBALAMIN. [Concomitant]
     Active Substance: CYANOCOBALAMIN
     Indication: PRODUCT USED FOR UNKNOWN INDICATION
     Dosage: 1000 MCG, QD
     Route: 048
  11. HEPARIN [Concomitant]
     Active Substance: HEPARIN SODIUM
     Indication: PRODUCT USED FOR UNKNOWN INDICATION
     Dosage: 5000 UNITS/ML, 1 ML, QD
     Route: 058
     Dates: start: 20200826, end: 20200831
  12. LEUCOVORIN CALCIUM (MANUFACTURER UNKNOWN) [Suspect]
     Active Substance: LEUCOVORIN CALCIUM
     Indication: CERVIX CARCINOMA
     Dosage: 500 MG; ONCE EVERY 2 WEEKS
     Route: 042
     Dates: start: 20200810
  13. ONDANSETRON [Concomitant]
     Active Substance: ONDANSETRON
     Indication: NAUSEA
     Dosage: 4 MG, TID PRN (ONGOING)
     Route: 048
     Dates: start: 20200821
  14. ASCORBIC ACID/RUTOSIDE/HESPERIDIN/BIOFLAVONOIDS NOS/MALPIGHIA GLABRA/ROSA CANINA [Concomitant]
     Indication: PRODUCT USED FOR UNKNOWN INDICATION
     Dosage: 1000 MCG, QD
     Route: 048
  15. PARACETAMOL [Concomitant]
     Active Substance: ACETAMINOPHEN
     Indication: PAIN
     Dosage: 500 MG, Q6HPRN
     Route: 048
  16. HYDROCHLOROTHIAZIDE. [Concomitant]
     Active Substance: HYDROCHLOROTHIAZIDE
     Indication: HYPERTENSION
     Dosage: 12.5, QD
     Route: 065
  17. LOPERAMIDE [Concomitant]
     Active Substance: LOPERAMIDE
     Indication: DIARRHOEA
     Dosage: Q4H PRN
     Route: 048
  18. RAMIPRIL. [Concomitant]
     Active Substance: RAMIPRIL
     Indication: HYPERTENSION
     Dosage: QD
     Route: 048
  19. POTASSIUM CHLORIDE. [Concomitant]
     Active Substance: POTASSIUM CHLORIDE
     Indication: HYPOKALAEMIA
     Dosage: 100 ML/ HR OVER 60 MINUTES; 10 MEQ
     Route: 042
     Dates: start: 20200826, end: 202008

REACTIONS (1)
  - Sepsis [Recovered/Resolved]

NARRATIVE: CASE EVENT DATE: 20200825
